FAERS Safety Report 6793984-8 (Version None)
Quarter: 2010Q2

REPORT INFORMATION
  Report Type: 
  Country: None (occurrence: None)
  Receive Date: 20100624
  Receipt Date: 20070316
  Transmission Date: 20101027
  Serious: No
  Sender: FDA-Public Use
  Company Number: US-PFIZER INC-ENC200700040

PATIENT
  Age: 63 Year
  Sex: Male
  Weight: 79 kg

DRUGS (2)
  1. ARGATROBAN [Suspect]
     Indication: HEPARIN-INDUCED THROMBOCYTOPENIA
     Dosage: 3.3 MG/HR,FREQUENCY:  CONTINUOUS
     Route: 042
     Dates: start: 20070312, end: 20070315
  2. ARGATROBAN [Suspect]
     Dosage: FREQUENCY:  CONTINUOUS
     Route: 042
     Dates: start: 20070316, end: 20070321

REACTIONS (2)
  - COAGULATION TIME ABNORMAL [None]
  - WEIGHT DECREASED [None]
